FAERS Safety Report 14424153 (Version 2)
Quarter: 2018Q1

REPORT INFORMATION
  Report Type: Report from Study
  Country: CA (occurrence: CA)
  Receive Date: 20180123
  Receipt Date: 20180129
  Transmission Date: 20180509
  Serious: Yes (Other)
  Sender: FDA-Public Use
  Company Number: PHHY2018CA008570

PATIENT
  Sex: Male

DRUGS (1)
  1. VOTRIENT [Suspect]
     Active Substance: PAZOPANIB HYDROCHLORIDE
     Indication: METASTATIC RENAL CELL CARCINOMA
     Dosage: 800 MG, UNK
     Route: 048
     Dates: start: 20160901

REACTIONS (7)
  - Angina pectoris [Unknown]
  - Malaise [Unknown]
  - Weight decreased [Unknown]
  - Vomiting [Unknown]
  - Metastases to lung [Unknown]
  - Decreased appetite [Unknown]
  - Cough [Unknown]
